FAERS Safety Report 6139520-0 (Version None)
Quarter: 2009Q1

REPORT INFORMATION
  Report Type: 
  Country: None (occurrence: None)
  Receive Date: 20090324
  Receipt Date: 20090317
  Transmission Date: 20090719
  Serious: Yes (Other)
  Sender: FDA-Public Use
  Company Number: 223191

PATIENT
  Age: 58 Year
  Sex: Male

DRUGS (7)
  1. FENTANYL CITRATE [Suspect]
     Indication: GENERAL ANAESTHESIA
  2. MIDAZOLAM HCL [Suspect]
     Indication: GENERAL ANAESTHESIA
  3. PROPOFOL [Suspect]
     Indication: GENERAL ANAESTHESIA
  4. VANCOMYCIN HCL [Suspect]
     Indication: PROPHYLAXIS
  5. (CISATRACURIUM) [Suspect]
     Indication: GENERAL ANAESTHESIA
  6. CHLORHEXIDINE GLUCONATE [Suspect]
     Indication: PROPHYLAXIS
  7. . [Concomitant]

REACTIONS (4)
  - ANAPHYLACTIC REACTION [None]
  - BRONCHOSPASM [None]
  - HYPOTENSION [None]
  - TACHYCARDIA [None]
